FAERS Safety Report 8680166 (Version 2)
Quarter: 2013Q4

REPORT INFORMATION
  Report Type: Spontaneous
  Country: SE (occurrence: SE)
  Receive Date: 20120724
  Receipt Date: 20131003
  Transmission Date: 20140711
  Serious: Yes (Congenital Anomaly, Other)
  Sender: FDA-Public Use
  Company Number: SE-009507513-1206USA02369B1

PATIENT
  Age: 1 Day
  Sex: Male

DRUGS (1)
  1. MAXALT [Suspect]
     Indication: HEADACHE
     Route: 064
     Dates: start: 201105, end: 20120227

REACTIONS (2)
  - Cleft lip and palate [Unknown]
  - Foetal exposure during pregnancy [Recovered/Resolved]
